FAERS Safety Report 17395026 (Version 1)
Quarter: 2020Q1

REPORT INFORMATION
  Report Type: Spontaneous
  Country: US (occurrence: US)
  Receive Date: 20200123
  Receipt Date: 20200123
  Transmission Date: 20200409
  Serious: No
  Sender: FDA-Public Use
  Company Number: None

PATIENT
  Age: 66 Year
  Sex: Female
  Weight: 96.16 kg

DRUGS (21)
  1. TRAZODONE [Concomitant]
     Active Substance: TRAZODONE HYDROCHLORIDE
  2. TRAMADOL. [Concomitant]
     Active Substance: TRAMADOL
  3. B-6 [Concomitant]
  4. VITAMIN B12 [Concomitant]
     Active Substance: CYANOCOBALAMIN
  5. FIBER [Concomitant]
     Active Substance: PSYLLIUM HUSK
  6. VITAN D3 [Concomitant]
  7. SERTRALINE [Concomitant]
     Active Substance: SERTRALINE HYDROCHLORIDE
  8. RESPERIDONE [Concomitant]
     Active Substance: RISPERIDONE
  9. E-400 [Concomitant]
  10. COENZYME Q10 [Concomitant]
     Active Substance: UBIDECARENONE
  11. NP THYROID [Suspect]
     Active Substance: LEVOTHYROXINE\LIOTHYRONINE
     Indication: PRODUCT USED FOR UNKNOWN INDICATION
     Dosage: ?          QUANTITY:1 DF DOSAGE FORM;?
     Route: 048
     Dates: start: 201910, end: 201912
  12. VITAMIN C [Concomitant]
     Active Substance: ASCORBIC ACID
  13. GARLIC. [Concomitant]
     Active Substance: GARLIC
  14. BUSIPONE-HCL [Concomitant]
  15. LIVALO [Concomitant]
     Active Substance: PITAVASTATIN CALCIUM
  16. CYCLOBENZAPRINE. [Concomitant]
     Active Substance: CYCLOBENZAPRINE
  17. FAIR HOPE MUSCLE GEL [Concomitant]
  18. HYDROCHLOROTHIAZIDE. [Concomitant]
     Active Substance: HYDROCHLOROTHIAZIDE
  19. AMOX/CLAV 875 [Concomitant]
  20. CRANBERRYBIDINI [Concomitant]
  21. MONTELUKOST [Concomitant]

REACTIONS (3)
  - Wrong product administered [None]
  - Drug dispensed to wrong patient [None]
  - Product dispensing error [None]
